FAERS Safety Report 19621490 (Version 2)
Quarter: 2021Q3

REPORT INFORMATION
  Report Type: Spontaneous
  Country: GB (occurrence: GB)
  Receive Date: 20210728
  Receipt Date: 20210805
  Transmission Date: 20211014
  Serious: Yes (Other)
  Sender: FDA-Public Use
  Company Number: GB-TEVA-2021-GB-1906841

PATIENT
  Age: 53 Year
  Sex: Female

DRUGS (13)
  1. DOCETAXEL. [Suspect]
     Active Substance: DOCETAXEL
     Dosage: 90 MG
     Route: 042
     Dates: start: 20160203, end: 20160316
  2. DOCETAXEL. [Suspect]
     Active Substance: DOCETAXEL
     Dosage: 5 CYCLES PER REGIMEN, 120 MG
     Route: 042
     Dates: start: 20151223, end: 20160113
  3. PERTUZUMAB. [Suspect]
     Active Substance: PERTUZUMAB
     Indication: BREAST CANCER
     Dosage: MAINTAINENCE DOSE, 420 MG
     Route: 042
     Dates: start: 20151223, end: 20160720
  4. DENOSUMAB [Suspect]
     Active Substance: DENOSUMAB
     Indication: BREAST CANCER
     Dosage: 120 MG
     Route: 058
     Dates: start: 20151203
  5. TRASTUZUMAB. [Suspect]
     Active Substance: TRASTUZUMAB
     Dosage: 1071 MILLIGRAM DAILY; LOADING DOSE 1 CYCLE PER REGIMEN
     Route: 041
     Dates: start: 20151203, end: 20151203
  6. TRASTUZUMAB. [Suspect]
     Active Substance: TRASTUZUMAB
     Dosage: MAINTENANCE DOSE, 819 MG
     Route: 042
     Dates: start: 20151223, end: 20160113
  7. TRASTUZUMAB EMTANSINE [Suspect]
     Active Substance: ADO-TRASTUZUMAB EMTANSINE
     Indication: BREAST CANCER
     Dosage: 450 MG
     Route: 042
     Dates: start: 20160817, end: 20161109
  8. TRASTUZUMAB EMTANSINE [Suspect]
     Active Substance: ADO-TRASTUZUMAB EMTANSINE
     Dosage: FORM STRENGTH: 230 UNITED NOT REPORTED
     Route: 065
  9. LOPERAMIDE [Concomitant]
     Active Substance: LOPERAMIDE
     Dosage: AT A DOSE OF 2 (UNIT NOT REPORTED)
     Route: 048
  10. DOCETAXEL. [Suspect]
     Active Substance: DOCETAXEL
     Indication: BREAST CANCER
     Dosage: 1 CYCLE PER REGIMEN, 150 MG
     Route: 042
     Dates: start: 20151204, end: 20151204
  11. DENOSUMAB [Suspect]
     Active Substance: DENOSUMAB
     Indication: METASTASES TO BONE
     Dosage: FORM STRENGTH: 245 (UNIT NOT REPORTED)
     Route: 065
  12. PERTUZUMAB. [Suspect]
     Active Substance: PERTUZUMAB
     Dosage: LADING DOSE, 1 CYCLE PER REGIMEN, 840 MG
     Route: 042
     Dates: start: 20151203, end: 20151203
  13. TRASTUZUMAB. [Suspect]
     Active Substance: TRASTUZUMAB
     Indication: BREAST CANCER
     Dosage: MAINTENANCE DOSE, 735 MG
     Route: 042
     Dates: start: 20160203, end: 20160720

REACTIONS (19)
  - Vomiting [Recovered/Resolved]
  - Cough [Unknown]
  - Nail discolouration [Unknown]
  - Dyspnoea [Unknown]
  - Fatigue [Recovering/Resolving]
  - Vomiting [Recovered/Resolved]
  - Spinal pain [Unknown]
  - Diarrhoea [Recovered/Resolved]
  - Spinal pain [Recovered/Resolved]
  - Onychomycosis [Unknown]
  - Fatigue [Not Recovered/Not Resolved]
  - Diabetes mellitus [Not Recovered/Not Resolved]
  - Diabetes mellitus [Unknown]
  - Cough [Not Recovered/Not Resolved]
  - Decreased appetite [Unknown]
  - Migraine [Recovered/Resolved]
  - Diarrhoea [Recovered/Resolved]
  - Blood cholesterol increased [Unknown]
  - Depressed mood [Recovered/Resolved]

NARRATIVE: CASE EVENT DATE: 20151203
